FAERS Safety Report 8116725-0 (Version None)
Quarter: 2012Q1

REPORT INFORMATION
  Report Type: 
  Country: None (occurrence: None)
  Receive Date: 20120206
  Receipt Date: 20120130
  Transmission Date: 20120608
  Serious: Yes (Other)
  Sender: FDA-Public Use
  Company Number: PHHY2012FR009144

PATIENT
  Sex: Female

DRUGS (3)
  1. SANDIMMUNE [Suspect]
  2. NEORAL [Suspect]
  3. MYFORTIC [Suspect]

REACTIONS (1)
  - RENAL IMPAIRMENT [None]
